FAERS Safety Report 9035440 (Version 1)
Quarter: 2013Q1

REPORT INFORMATION
  Report Type: Report from Study
  Country: US (occurrence: US)
  Receive Date: 20130129
  Receipt Date: 20130129
  Transmission Date: 20140127
  Serious: No
  Sender: FDA-Public Use
  Company Number: US-ABBOTT-12P-163-0896480-00

PATIENT
  Age: 20 Year
  Sex: Female

DRUGS (5)
  1. HUMIRA 40 MG/0.8 ML PEN [Suspect]
     Indication: CROHN^S DISEASE
     Dosage: LOADING DOSE
     Dates: start: 20120119
  2. IRON [Concomitant]
     Indication: ANAEMIA
  3. CALCIUM [Concomitant]
     Indication: VITAMIN SUPPLEMENTATION
     Dosage: ONCE DAILY
     Dates: start: 201112
  4. PREVACID [Concomitant]
     Indication: DYSPEPSIA
     Dosage: ONCE DAILY
  5. PREDNISONE [Concomitant]
     Indication: CROHN^S DISEASE
     Dosage: WEANING DOWN

REACTIONS (2)
  - Pain [Recovering/Resolving]
  - Injection site haemorrhage [Recovering/Resolving]
